FAERS Safety Report 8780729 (Version 1)
Quarter: 2012Q4

REPORT INFORMATION
  Report Type: 
  Country: US (occurrence: US)
  Receive Date: 20120913
  Receipt Date: 20120913
  Transmission Date: 20130627
  Serious: No
  Sender: FDA-Public Use
  Company Number: US-VERTEX PHARMACEUTICAL INC.-AE-2012-008389

PATIENT
  Age: 62 Year
  Sex: Male
  Weight: 88.64 kg

DRUGS (9)
  1. INCIVEK [Suspect]
     Indication: HEPATITIS C
     Route: 048
     Dates: start: 20120528
  2. RIBAPAK [Concomitant]
     Indication: HEPATITIS C
     Route: 048
     Dates: start: 20120528
  3. PEGASYS [Concomitant]
     Indication: HEPATITIS C
     Route: 058
     Dates: start: 20120528
  4. GABAPENTIN [Concomitant]
     Indication: NEURALGIA
     Route: 048
  5. VITAMIN C [Concomitant]
     Indication: MEDICAL DIET
     Route: 048
  6. VITAMIN D [Concomitant]
     Indication: MEDICAL DIET
     Route: 048
  7. COQ 10 [Concomitant]
     Route: 048
  8. SELENIUM [Concomitant]
     Indication: MEDICAL DIET
     Route: 048
  9. MILK THISTLE [Concomitant]
     Route: 048

REACTIONS (4)
  - Depression [Not Recovered/Not Resolved]
  - Haematochezia [Not Recovered/Not Resolved]
  - Anorectal discomfort [Not Recovered/Not Resolved]
  - Anal pruritus [Not Recovered/Not Resolved]
